FAERS Safety Report 8325321-1 (Version None)
Quarter: 2012Q2

REPORT INFORMATION
  Report Type: 
  Country: None (occurrence: None)
  Receive Date: 20120501
  Receipt Date: 20120424
  Transmission Date: 20120825
  Serious: Yes (Hospitalization)
  Sender: FDA-Public Use
  Company Number: BR-JNJFOC-20120401579

PATIENT
  Sex: Male
  Weight: 57.3 kg

DRUGS (6)
  1. PREDNISONE [Suspect]
     Indication: PROSTATE CANCER METASTATIC
     Route: 048
     Dates: start: 20111212
  2. VITAMIN C [Concomitant]
     Indication: PRODUCT USED FOR UNKNOWN INDICATION
     Route: 065
     Dates: start: 20120205
  3. ABIRATERONE ACETATE [Suspect]
     Route: 048
  4. MORPHINE SULFATE [Concomitant]
     Indication: BACK PAIN
     Route: 065
     Dates: start: 20120207
  5. ABIRATERONE ACETATE [Suspect]
     Indication: PROSTATE CANCER METASTATIC
     Route: 048
     Dates: start: 20111213
  6. DIPYRONE TAB [Concomitant]
     Indication: BACK PAIN
     Route: 065
     Dates: start: 20120207

REACTIONS (5)
  - LUNG INFECTION [None]
  - GENERAL PHYSICAL HEALTH DETERIORATION [None]
  - CONDITION AGGRAVATED [None]
  - ANAEMIA [None]
  - CARDIAC FAILURE [None]
